FAERS Safety Report 14128034 (Version 1)
Quarter: 2017Q4

REPORT INFORMATION
  Report Type: Spontaneous
  Country: JP (occurrence: JP)
  Receive Date: 20171026
  Receipt Date: 20171026
  Transmission Date: 20180321
  Serious: Yes (Death)
  Sender: FDA-Public Use
  Company Number: JP-ROCHE-2013609

PATIENT
  Sex: Female

DRUGS (3)
  1. ACTEMRA [Suspect]
     Active Substance: TOCILIZUMAB
     Indication: RHEUMATOID ARTHRITIS
     Route: 058
     Dates: start: 20170713, end: 2017
  2. GOLIMUMAB [Concomitant]
     Active Substance: GOLIMUMAB
  3. ABATACEPT [Concomitant]
     Active Substance: ABATACEPT

REACTIONS (1)
  - Aortic dissection [Fatal]
